FAERS Safety Report 5805905-2 (Version None)
Quarter: 2008Q3

REPORT INFORMATION
  Report Type: 
  Country: None (occurrence: None)
  Receive Date: 20080710
  Receipt Date: 20080704
  Transmission Date: 20090109
  Serious: Yes (Other)
  Sender: FDA-Public Use
  Company Number: JP-BAYER-200810770BYL

PATIENT
  Age: 66 Year
  Sex: Female
  Weight: 58 kg

DRUGS (3)
  1. ASPIRIN [Suspect]
     Indication: AORTIC THROMBOSIS
     Dosage: TOTAL DAILY DOSE: 100 MG  UNIT DOSE: 100 MG
     Route: 048
  2. WARFARIN SODIUM [Suspect]
     Indication: AORTIC THROMBOSIS
     Dosage: TOTAL DAILY DOSE: 2 MG
     Route: 048
  3. PREDONINE [Concomitant]
     Indication: SYSTEMIC LUPUS ERYTHEMATOSUS
     Dosage: TOTAL DAILY DOSE: 3 MG
     Route: 048

REACTIONS (1)
  - HAEMATOMA [None]
